FAERS Safety Report 9247404 (Version 1)
Quarter: 2013Q2

REPORT INFORMATION
  Report Type: Spontaneous
  Country: FR (occurrence: FR)
  Receive Date: 20130423
  Receipt Date: 20130423
  Transmission Date: 20140414
  Serious: Yes (Hospitalization)
  Sender: FDA-Public Use
  Company Number: FR-009507513-1304FRA007960

PATIENT
  Age: 68 Year
  Sex: Female

DRUGS (4)
  1. EMEND [Suspect]
     Dosage: UNK
     Route: 048
     Dates: start: 20121228
  2. ALIMTA [Suspect]
     Dosage: 845 MG, CYCLICAL
     Route: 042
     Dates: start: 20121015, end: 20121228
  3. CISPLATIN [Suspect]
     Dosage: 120 MG, CYCLICAL
     Route: 042
     Dates: start: 20121015, end: 20121228
  4. PRIMPERAN [Suspect]
     Dosage: UNK
     Route: 048
     Dates: start: 20121228

REACTIONS (1)
  - Visual impairment [Recovered/Resolved]
